FAERS Safety Report 13662525 (Version 1)
Quarter: 2017Q2

REPORT INFORMATION
  Report Type: Spontaneous
  Country: US (occurrence: US)
  Receive Date: 20170617
  Receipt Date: 20170617
  Transmission Date: 20170830
  Serious: No
  Sender: FDA-Public Use
  Company Number: US-009507513-1705USA012074

PATIENT
  Age: 20 Year
  Sex: Female
  Weight: 104.31 kg

DRUGS (2)
  1. NUVARING [Suspect]
     Active Substance: ETHINYL ESTRADIOL\ETONOGESTREL
     Indication: CONTRACEPTION
     Dosage: UNK, 3 WEEKS IN 1 WEEK OUT
     Route: 067
     Dates: start: 201701
  2. NORETHINDRONE. [Concomitant]
     Active Substance: NORETHINDRONE

REACTIONS (3)
  - Menstruation irregular [Unknown]
  - Dysmenorrhoea [Unknown]
  - Vulvovaginal discomfort [Unknown]

NARRATIVE: CASE EVENT DATE: 2017
